FAERS Safety Report 17809379 (Version 1)
Quarter: 2020Q2

REPORT INFORMATION
  Report Type: Spontaneous
  Country: US (occurrence: US)
  Receive Date: 20200520
  Receipt Date: 20200520
  Transmission Date: 20200714
  Serious: Yes (Other)
  Sender: FDA-Public Use
  Company Number: US-COVIS PHARMA B.V.-2020COV00203

PATIENT
  Age: 58 Year
  Sex: Female
  Weight: 79.37 kg

DRUGS (12)
  1. FLONASE [Concomitant]
     Active Substance: FLUTICASONE PROPIONATE
  2. BACLOFEN. [Concomitant]
     Active Substance: BACLOFEN
     Dosage: 5 MG, 2X/DAY
  3. PROBIOTICS [Concomitant]
     Active Substance: PROBIOTICS NOS
  4. ALVESCO [Suspect]
     Active Substance: CICLESONIDE
     Indication: ASTHMA
     Dosage: 320 ?G, 1X/DAY
     Dates: start: 20200508
  5. VENTOLIN [Concomitant]
     Active Substance: ALBUTEROL SULFATE
     Dosage: 2 PUFFS, 1X/DAY
     Dates: start: 202005
  6. VITAMIN D3 [Concomitant]
     Active Substance: CHOLECALCIFEROL
  7. FISH OIL [Concomitant]
     Active Substance: FISH OIL
  8. RIZATRIPTAN. [Concomitant]
     Active Substance: RIZATRIPTAN
     Dosage: UNK, AS NEEDED
  9. ZYRTEC [Concomitant]
     Active Substance: CETIRIZINE HYDROCHLORIDE
     Dosage: UNK, 1X/DAY
  10. VENTOLIN [Concomitant]
     Active Substance: ALBUTEROL SULFATE
     Dosage: UNK, AS NEEDED
  11. MULTIVITAMIN [Concomitant]
     Active Substance: VITAMINS
     Dosage: UNK, INFREQUENT USE
  12. ONDANSETRON [Concomitant]
     Active Substance: ONDANSETRON
     Dosage: UNK, AS NEEDED

REACTIONS (15)
  - Feeling abnormal [Not Recovered/Not Resolved]
  - Phrenic nerve irritation [Not Recovered/Not Resolved]
  - Drug ineffective [Not Recovered/Not Resolved]
  - Dyspnoea [Not Recovered/Not Resolved]
  - Dysgeusia [Not Recovered/Not Resolved]
  - Dizziness [Not Recovered/Not Resolved]
  - Cough [Not Recovered/Not Resolved]
  - Fatigue [Not Recovered/Not Resolved]
  - Pain in extremity [Not Recovered/Not Resolved]
  - Wheezing [Recovering/Resolving]
  - Underdose [Not Recovered/Not Resolved]
  - Asthma [Not Recovered/Not Resolved]
  - Respiratory tract irritation [Not Recovered/Not Resolved]
  - Respiratory symptom [Not Recovered/Not Resolved]
  - Chest discomfort [Not Recovered/Not Resolved]

NARRATIVE: CASE EVENT DATE: 202005
